FAERS Safety Report 9631791 (Version 2)
Quarter: 2013Q4

REPORT INFORMATION
  Report Type: Spontaneous
  Country: US (occurrence: US)
  Receive Date: 20131018
  Receipt Date: 20131018
  Transmission Date: 20140711
  Serious: No
  Sender: FDA-Public Use
  Company Number: US-MYLANLABS-2013S1020097

PATIENT
  Sex: Female

DRUGS (2)
  1. LEVONORGESTREL AND ETHINYL ESTRADIOL TABLETS USP [Suspect]
     Indication: ENDOMETRIOSIS
     Route: 048
     Dates: start: 201308
  2. LEVONORGESTREL AND ETHINYL ESTRADIOL TABLETS USP [Suspect]
     Indication: CONTRACEPTION
     Route: 048
     Dates: start: 201308

REACTIONS (2)
  - Drug ineffective for unapproved indication [Not Recovered/Not Resolved]
  - Endometriosis [Not Recovered/Not Resolved]
